FAERS Safety Report 15213267 (Version 2)
Quarter: 2018Q3

REPORT INFORMATION
  Report Type: Spontaneous
  Country: US (occurrence: US)
  Receive Date: 20180730
  Receipt Date: 20180903
  Transmission Date: 20181010
  Serious: No
  Sender: FDA-Public Use
  Company Number: US-PFIZER INC-2018304569

PATIENT
  Age: 40 Year
  Sex: Female

DRUGS (2)
  1. XELJANZ XR [Suspect]
     Active Substance: TOFACITINIB CITRATE
     Dosage: 11 MG, UNK
  2. RESTASIS [Suspect]
     Active Substance: CYCLOSPORINE
     Dosage: UNK

REACTIONS (2)
  - Product use issue [Unknown]
  - Bronchitis [Unknown]

NARRATIVE: CASE EVENT DATE: 2018
